FAERS Safety Report 6285360-1 (Version None)
Quarter: 2009Q3

REPORT INFORMATION
  Report Type: 
  Country: None (occurrence: None)
  Receive Date: 20090727
  Receipt Date: 20090713
  Transmission Date: 20100115
  Serious: Yes (Death)
  Sender: FDA-Public Use
  Company Number: BR-PFIZER INC-2009239485

PATIENT
  Age: 56 Year

DRUGS (7)
  1. REVATIO [Suspect]
     Indication: PULMONARY ARTERIAL HYPERTENSION
     Dosage: 1 TABLET, 1X/DAY
     Route: 048
     Dates: start: 20081022
  2. REVATIO [Suspect]
     Dosage: 1 TABLET 3X/DAY
  3. OMEPRAZOLE [Concomitant]
  4. CILOSTAZOL [Concomitant]
  5. COLCHICINE [Concomitant]
  6. SELOZOK [Concomitant]
  7. CUPRIMINE [Concomitant]

REACTIONS (3)
  - CARDIO-RESPIRATORY ARREST [None]
  - MULTI-ORGAN FAILURE [None]
  - PULMONARY ARTERIAL HYPERTENSION [None]
